FAERS Safety Report 20780183 (Version 2)
Quarter: 2022Q2

REPORT INFORMATION
  Report Type: Report from Study
  Country: US (occurrence: US)
  Receive Date: 20220503
  Receipt Date: 20220615
  Transmission Date: 20220721
  Serious: Yes (Other)
  Sender: FDA-Public Use
  Company Number: US-PCYC-2019PHC11101

PATIENT
  Age: 67 Year
  Sex: Male

DRUGS (12)
  1. IMBRUVICA [Suspect]
     Active Substance: IBRUTINIB
     Indication: Chronic lymphocytic leukaemia recurrent
     Route: 048
     Dates: start: 201901
  2. IMBRUVICA [Suspect]
     Active Substance: IBRUTINIB
     Indication: Chronic lymphocytic leukaemia
     Route: 048
     Dates: start: 20190201
  3. IMBRUVICA [Suspect]
     Active Substance: IBRUTINIB
     Route: 048
     Dates: start: 20190401
  4. IMBRUVICA [Suspect]
     Active Substance: IBRUTINIB
     Route: 048
     Dates: start: 20190520
  5. IMBRUVICA [Suspect]
     Active Substance: IBRUTINIB
     Dosage: 420 MG, QD
     Route: 048
     Dates: start: 20190131
  6. IMBRUVICA [Suspect]
     Active Substance: IBRUTINIB
     Route: 048
  7. IMBRUVICA [Suspect]
     Active Substance: IBRUTINIB
     Route: 048
     Dates: start: 201902
  8. IMBRUVICA [Suspect]
     Active Substance: IBRUTINIB
     Route: 048
     Dates: start: 201902, end: 202101
  9. IMBRUVICA [Suspect]
     Active Substance: IBRUTINIB
     Route: 048
     Dates: start: 202101
  10. IMBRUVICA [Suspect]
     Active Substance: IBRUTINIB
     Route: 048
     Dates: start: 20190201
  11. IMBRUVICA [Suspect]
     Active Substance: IBRUTINIB
     Route: 048
  12. ASPIRIN [Suspect]
     Active Substance: ASPIRIN
     Indication: Product used for unknown indication
     Dosage: UNK
     Route: 065

REACTIONS (21)
  - Pollakiuria [Recovering/Resolving]
  - Dysphonia [Unknown]
  - Thrombosis [Unknown]
  - Urinary tract disorder [Unknown]
  - Product dose omission issue [Unknown]
  - Memory impairment [Unknown]
  - Erectile dysfunction [Unknown]
  - Rash pruritic [Unknown]
  - Scratch [Recovering/Resolving]
  - Blood pressure increased [Unknown]
  - White blood cell count increased [Unknown]
  - Contusion [Recovering/Resolving]
  - Arthralgia [Unknown]
  - Increased tendency to bruise [Not Recovered/Not Resolved]
  - Musculoskeletal chest pain [Unknown]
  - Rash macular [Unknown]
  - Haemorrhage [Unknown]
  - Wound infection [Recovering/Resolving]
  - Contusion [Recovering/Resolving]
  - Haemorrhage [Recovering/Resolving]
  - Infection [Recovering/Resolving]

NARRATIVE: CASE EVENT DATE: 20190401
